FAERS Safety Report 5093953-2 (Version None)
Quarter: 2006Q3

REPORT INFORMATION
  Report Type: 
  Country: None (occurrence: None)
  Receive Date: 20060829
  Receipt Date: 20060829
  Transmission Date: 20061208
  Serious: Yes (Other)
  Sender: FDA-Public Use
  Company Number: None

PATIENT
  Age: 30 Year
  Sex: Female
  Weight: 65.7716 kg

DRUGS (1)
  1. EFFEXOR XR [Suspect]
     Indication: MIGRAINE PROPHYLAXIS
     Dosage: 150 MG DAILY PO
     Route: 048
     Dates: start: 20050701, end: 20060828

REACTIONS (8)
  - AFFECTIVE DISORDER [None]
  - ANGER [None]
  - ARTHRALGIA [None]
  - DIZZINESS [None]
  - DRUG WITHDRAWAL SYNDROME [None]
  - MARITAL PROBLEM [None]
  - NIGHTMARE [None]
  - THINKING ABNORMAL [None]
